FAERS Safety Report 9879196 (Version 2)
Quarter: 2014Q1

REPORT INFORMATION
  Report Type: Spontaneous
  Country: US (occurrence: US)
  Receive Date: 20140206
  Receipt Date: 20140206
  Transmission Date: 20141002
  Serious: No
  Sender: FDA-Public Use
  Company Number: US-ALLERGAN-1313842US

PATIENT
  Age: 39 Year
  Sex: Female

DRUGS (4)
  1. BOTOX COSMETIC [Suspect]
     Indication: SKIN WRINKLING
     Dosage: 20 UNITS, SINGLE
     Route: 030
     Dates: start: 20130803, end: 20130803
  2. BOTOX COSMETIC [Suspect]
     Indication: SKIN WRINKLING
     Dosage: 20 UNITS, SINGLE
     Route: 030
     Dates: start: 20130803, end: 20130803
  3. BOTOX COSMETIC [Suspect]
     Indication: SKIN WRINKLING
  4. SYNTHROID [Concomitant]
     Indication: HYPOTHYROIDISM
     Dosage: 0.75 MG, QD
     Route: 048

REACTIONS (6)
  - Skin tightness [Recovering/Resolving]
  - Blepharochalasis [Recovering/Resolving]
  - Eyelid sensory disorder [Recovering/Resolving]
  - Nasal disorder [Recovering/Resolving]
  - Drug ineffective [Unknown]
  - Eyelid ptosis [Recovering/Resolving]
